FAERS Safety Report 5080406-0 (Version None)
Quarter: 2006Q3

REPORT INFORMATION
  Report Type: 
  Country: None (occurrence: None)
  Receive Date: 20060815
  Receipt Date: 20001102
  Transmission Date: 20061208
  Serious: Yes (Hospitalization)
  Sender: FDA-Public Use
  Company Number: FR-SOLVAY-00200006350

PATIENT
  Age: 28912 Day
  Sex: Female

DRUGS (4)
  1. COVERSYL [Suspect]
     Indication: CARDIAC FAILURE CONGESTIVE
     Dosage: DAILY DOSE: 2 MG.
     Route: 048
     Dates: start: 19971212
  2. PREVISCAN [Concomitant]
     Indication: ILL-DEFINED DISORDER
     Dosage: DAILY DOSE: UNK.
     Route: 065
  3. DIGOXIN [Concomitant]
     Indication: ILL-DEFINED DISORDER
     Dosage: DAILY DOSE: UNK.
     Route: 065
  4. LASILIX [Concomitant]
     Indication: ILL-DEFINED DISORDER
     Dosage: DAILY DOSE: UNK.
     Route: 065

REACTIONS (5)
  - COUGH [None]
  - DYSPNOEA [None]
  - LEFT VENTRICULAR FAILURE [None]
  - ORTHOPNOEA [None]
  - SUPERINFECTION LUNG [None]
